FAERS Safety Report 9765943 (Version 1)
Quarter: 2013Q4

REPORT INFORMATION
  Report Type: Spontaneous
  Country: US (occurrence: US)
  Receive Date: 20131217
  Receipt Date: 20131217
  Transmission Date: 20140711
  Serious: No
  Sender: FDA-Public Use
  Company Number: US-BIOGENIDEC-2013BI113850

PATIENT
  Sex: Female

DRUGS (9)
  1. TECFIDERA [Suspect]
     Indication: MULTIPLE SCLEROSIS
     Route: 048
     Dates: start: 20131013, end: 20131017
  2. ALPRAZOLAM [Concomitant]
  3. ATORVASTATIN [Concomitant]
  4. ECOTRIN [Concomitant]
  5. FISH OIL [Concomitant]
  6. SERTRALINE [Concomitant]
  7. TRAZODONE [Concomitant]
  8. VIT D [Concomitant]
  9. VIT E [Concomitant]

REACTIONS (5)
  - Decreased appetite [Recovered/Resolved]
  - Weight decreased [Recovered/Resolved]
  - Abdominal discomfort [Recovered/Resolved]
  - Nausea [Recovered/Resolved]
  - Vomiting [Recovered/Resolved]
